FAERS Safety Report 10652556 (Version 1)
Quarter: 2014Q4

REPORT INFORMATION
  Report Type: Spontaneous
  Country: US (occurrence: None)
  Receive Date: 20141205
  Receipt Date: 20141205
  Transmission Date: 20150529
  Serious: Yes (Hospitalization)
  Sender: FDA-Public Use
  Company Number: USA-2014105261

PATIENT
  Age: 82 Year
  Sex: Female
  Weight: 86.18 kg

DRUGS (9)
  1. POMALYST [Suspect]
     Active Substance: POMALIDOMIDE
     Indication: PLASMA CELL MYELOMA
     Route: 048
     Dates: start: 20130611
  2. ATORVASTATIN(ATORVASTATIN) [Concomitant]
  3. HUMALOG(INSULIN LISPRO) [Concomitant]
  4. CEFAZOLIN(CEFAZOLIN) [Concomitant]
  5. LANTUS [Concomitant]
     Active Substance: INSULIN GLARGINE
  6. GEMFIBROZIL(GEMFIBROZIL) [Concomitant]
  7. FUROSEMIDE(FUROSEMIDE) [Concomitant]
  8. METOPROLOL(METOPROLOL) [Concomitant]
  9. PAROXETINE(PAROXETINE) [Concomitant]

REACTIONS (1)
  - Bacterial infection [None]
